FAERS Safety Report 8440313-X (Version None)
Quarter: 2012Q2

REPORT INFORMATION
  Report Type: 
  Country: None (occurrence: None)
  Receive Date: 20120615
  Receipt Date: 20120604
  Transmission Date: 20120825
  Serious: Yes (Other)
  Sender: FDA-Public Use
  Company Number: US-SANOFI-AVENTIS-2012SA040218

PATIENT
  Sex: Female

DRUGS (1)
  1. AMBIEN CR [Suspect]

REACTIONS (1)
  - NEOPLASM MALIGNANT [None]
